FAERS Safety Report 4477230-6 (Version None)
Quarter: 2004Q4

REPORT INFORMATION
  Report Type: 
  Country: None (occurrence: None)
  Receive Date: 20041018
  Receipt Date: 20041008
  Transmission Date: 20050328
  Serious: Yes (Other)
  Sender: FDA-Public Use
  Company Number: US-MERCK-0410USA01447

PATIENT
  Age: 43 Year
  Sex: Male

DRUGS (1)
  1. VIOXX [Suspect]
     Indication: ARTHRITIS
     Route: 048
     Dates: end: 20040101

REACTIONS (4)
  - CHEST PAIN [None]
  - DRUG INEFFECTIVE [None]
  - DYSPNOEA [None]
  - RENAL DISORDER [None]
